FAERS Safety Report 10097883 (Version 1)
Quarter: 2014Q2

REPORT INFORMATION
  Report Type: Spontaneous
  Country: US (occurrence: US)
  Receive Date: 20140423
  Receipt Date: 20140423
  Transmission Date: 20141212
  Serious: No
  Sender: FDA-Public Use
  Company Number: US-BIOGENIDEC-2014BI035802

PATIENT
  Age: 51 Year
  Sex: Female
  Weight: 69 kg

DRUGS (5)
  1. TECFIDERA [Suspect]
     Indication: PRODUCT USED FOR UNKNOWN INDICATION
     Route: 048
     Dates: start: 20130830, end: 20140314
  2. TECFIDERA [Suspect]
     Indication: PRODUCT USED FOR UNKNOWN INDICATION
     Route: 048
     Dates: start: 20140328
  3. COMBIVENT [Concomitant]
  4. TRAMADOL [Concomitant]
  5. DEPAKOTE ER [Concomitant]

REACTIONS (2)
  - Epistaxis [Recovered/Resolved]
  - Intentional product misuse [Not Recovered/Not Resolved]
